FAERS Safety Report 18533210 (Version 1)
Quarter: 2020Q4

REPORT INFORMATION
  Report Type: Spontaneous
  Country: FR (occurrence: FR)
  Receive Date: 20201123
  Receipt Date: 20201123
  Transmission Date: 20210114
  Serious: Yes (Other)
  Sender: FDA-Public Use
  Company Number: FR-ORION CORPORATION ORION PHARMA-TREX2020-2281

PATIENT
  Age: 46 Year
  Sex: Male

DRUGS (4)
  1. INEXIUM [Concomitant]
     Active Substance: ESOMEPRAZOLE
     Route: 065
  2. CORTICOSTEROID [Concomitant]
     Active Substance: CORTICOSTEROID NOS
     Route: 065
  3. IMETH [Suspect]
     Active Substance: METHOTREXATE SODIUM
     Dosage: STRENGTH: 2.5 MG (8 TABLETS)
     Route: 048
     Dates: start: 202004, end: 202004
  4. IMETH [Suspect]
     Active Substance: METHOTREXATE SODIUM
     Indication: SPONDYLITIS
     Dosage: STRENGTH: 2.5 MG
     Route: 048
     Dates: start: 202004, end: 202004

REACTIONS (12)
  - General physical health deterioration [Not Recovered/Not Resolved]
  - Therapy cessation [Unknown]
  - Pneumonia [Unknown]
  - Nausea [Unknown]
  - Salivary hypersecretion [Unknown]
  - Pyrexia [Unknown]
  - Product use in unapproved indication [Unknown]
  - Cough [Unknown]
  - Dysphagia [Unknown]
  - Vomiting [Unknown]
  - Immobile [Unknown]
  - Dizziness [Unknown]

NARRATIVE: CASE EVENT DATE: 202004
